FAERS Safety Report 7142598-9 (Version None)
Quarter: 2010Q4

REPORT INFORMATION
  Report Type: 
  Country: None (occurrence: None)
  Receive Date: 20101207
  Receipt Date: 20101127
  Transmission Date: 20110411
  Serious: Yes (Hospitalization)
  Sender: FDA-Public Use
  Company Number: DE-ABBOTT-10P-062-0687768-00

PATIENT
  Sex: Male
  Weight: 75 kg

DRUGS (6)
  1. HUMIRA [Suspect]
     Indication: ANKYLOSING SPONDYLITIS
     Route: 058
     Dates: start: 20090801
  2. HUMIRA [Suspect]
  3. ARCOXIA [Concomitant]
     Indication: ANKYLOSING SPONDYLITIS
     Route: 048
     Dates: start: 20100301
  4. ARCOXIA [Concomitant]
  5. TRAMADOLOL [Concomitant]
     Indication: ANKYLOSING SPONDYLITIS
     Route: 048
  6. TRAMADOLOL [Concomitant]

REACTIONS (2)
  - CHOLECYSTITIS [None]
  - PANCREATITIS [None]
